FAERS Safety Report 7544470-9 (Version None)
Quarter: 2011Q2

REPORT INFORMATION
  Report Type: 
  Country: None (occurrence: None)
  Receive Date: 20110613
  Receipt Date: 20100302
  Transmission Date: 20111010
  Serious: Yes (Death, Hospitalization, Other)
  Sender: FDA-Public Use
  Company Number: PHHY2009JP36026

PATIENT
  Age: 69 Year
  Sex: Male
  Weight: 54 kg

DRUGS (9)
  1. EXJADE [Suspect]
     Indication: MYELODYSPLASTIC SYNDROME
     Dosage: 214 MG, QW
     Route: 048
     Dates: start: 20090129, end: 20090330
  2. URSO 250 [Concomitant]
     Dosage: 600 MG, UNK
     Route: 048
     Dates: start: 20090129, end: 20090330
  3. MUCOSTA [Concomitant]
     Dosage: 300 MG, UNK
     Route: 048
     Dates: start: 20090129, end: 20090330
  4. EXJADE [Suspect]
     Indication: IRON OVERLOAD
  5. EXJADE [Suspect]
     Indication: REFRACTORY ANAEMIA
  6. RED BLOOD CELLS, CONCENTRATED [Concomitant]
     Dosage: 2 U, BIW
     Dates: start: 20090129, end: 20090330
  7. SULFAMETHOXAZOLE [Concomitant]
     Indication: PROPHYLAXIS
     Dosage: 1 DF, UNK
     Route: 048
     Dates: start: 20090129, end: 20090330
  8. TAMSULOSIN HCL [Concomitant]
     Dosage: 1 DF, UNK
     Route: 048
     Dates: start: 20090129, end: 20090330
  9. MAGNESIUM OXIDE [Concomitant]
     Dosage: 4 G, UNK
     Route: 048
     Dates: start: 20090129, end: 20090330

REACTIONS (4)
  - MYELODYSPLASTIC SYNDROME TRANSFORMATION [None]
  - DISEASE PROGRESSION [None]
  - PLATELET COUNT DECREASED [None]
  - LEUKAEMIA [None]
